FAERS Safety Report 12552846 (Version 1)
Quarter: 2016Q3

REPORT INFORMATION
  Report Type: Spontaneous
  Country: US (occurrence: None)
  Receive Date: 20160713
  Receipt Date: 20160713
  Transmission Date: 20161109
  Serious: Yes (Other)
  Sender: FDA-Public Use
  Company Number: None

PATIENT
  Age: 68 Year
  Sex: Female
  Weight: 115.67 kg

DRUGS (20)
  1. SINGULAIR [Concomitant]
     Active Substance: MONTELUKAST SODIUM
  2. ZEASORB [Concomitant]
     Active Substance: MICONAZOLE NITRATE
  3. CETIRIZINE HYDROCHLORIDE. [Concomitant]
     Active Substance: CETIRIZINE HYDROCHLORIDE
  4. HYQVIA [Suspect]
     Active Substance: HUMAN IMMUNOGLOBULIN G\HYALURONIDASE RECOMBINANT HUMAN
     Indication: IMMUNODEFICIENCY COMMON VARIABLE
     Dates: start: 20141223
  5. GEMFIBROZIL. [Concomitant]
     Active Substance: GEMFIBROZIL
  6. PANTOPRAZOLE SODIUM. [Concomitant]
     Active Substance: PANTOPRAZOLE SODIUM
  7. VENTILIN [Concomitant]
  8. IPARTROPIUM BROMIDE [Concomitant]
  9. ALBUTERAL SULFATE [Concomitant]
  10. BUDESONIDE. [Concomitant]
     Active Substance: BUDESONIDE
  11. FUROSEMIDE. [Concomitant]
     Active Substance: FUROSEMIDE
  12. CALAN ER [Concomitant]
  13. AVAPRO [Concomitant]
     Active Substance: IRBESARTAN
  14. PREDISONE [Concomitant]
     Active Substance: PREDNISONE
  15. VITAMIN D3 [Concomitant]
     Active Substance: CHOLECALCIFEROL
  16. KLOR-CON [Concomitant]
     Active Substance: POTASSIUM CHLORIDE
  17. BETAMETHESONE [Concomitant]
  18. BROVANA [Concomitant]
     Active Substance: ARFORMOTEROL TARTRATE
  19. XANAX [Concomitant]
     Active Substance: ALPRAZOLAM
  20. OXYGEN. [Concomitant]
     Active Substance: OXYGEN

REACTIONS (5)
  - Tendon pain [None]
  - Neck pain [None]
  - Peripheral coldness [None]
  - Headache [None]
  - Heart rate increased [None]

NARRATIVE: CASE EVENT DATE: 20160627
